FAERS Safety Report 15594449 (Version 10)
Quarter: 2019Q3

REPORT INFORMATION
  Report Type: Report from Study
  Country: US (occurrence: US)
  Receive Date: 20181106
  Receipt Date: 20190820
  Transmission Date: 20191004
  Serious: Yes (Death, Hospitalization)
  Sender: FDA-Public Use
  Company Number: US-ACTELION-A-NJ2018-181265

PATIENT
  Age: 82 Year
  Sex: Female
  Weight: 56.24 kg

DRUGS (8)
  1. OXYGEN. [Concomitant]
     Active Substance: OXYGEN
     Dosage: 3 L
  2. VELETRI [Suspect]
     Active Substance: EPOPROSTENOL
     Indication: PULMONARY ARTERIAL HYPERTENSION
     Dosage: 15 NG/KG, PER MIN
     Route: 042
  3. VELETRI [Suspect]
     Active Substance: EPOPROSTENOL
     Dosage: 8 NG/KG, PER MIN
     Route: 042
     Dates: start: 20181026
  4. VELETRI [Suspect]
     Active Substance: EPOPROSTENOL
     Dosage: 27 NG/KG, PER MIN
     Route: 042
  5. OPSUMIT [Suspect]
     Active Substance: MACITENTAN
     Indication: PULMONARY ARTERIAL HYPERTENSION
     Dosage: 10 MG, QD
     Route: 048
     Dates: start: 20150529, end: 20190803
  6. ORENITRAM [Suspect]
     Active Substance: TREPROSTINIL
     Indication: PULMONARY ARTERIAL HYPERTENSION
     Dosage: 2 MG, TID
     Route: 048
     Dates: start: 20160308, end: 20181027
  7. ADCIRCA [Concomitant]
     Active Substance: TADALAFIL
  8. VELETRI [Suspect]
     Active Substance: EPOPROSTENOL
     Dosage: 26 NG/KG, PER MIN
     Route: 042

REACTIONS (30)
  - Haemoglobin decreased [Recovered/Resolved]
  - Fatigue [Recovered/Resolved]
  - Weight increased [Recovered/Resolved with Sequelae]
  - Diarrhoea [Unknown]
  - Exercise tolerance decreased [Unknown]
  - Catheter site pruritus [Unknown]
  - Hospitalisation [Unknown]
  - Gastrointestinal haemorrhage [Recovered/Resolved]
  - Headache [Unknown]
  - Gastrointestinal ulcer [Recovered/Resolved]
  - Chills [Unknown]
  - Shock haemorrhagic [Fatal]
  - Haematemesis [Recovered/Resolved]
  - Blood creatinine increased [Recovered/Resolved with Sequelae]
  - Nausea [Recovered/Resolved]
  - Hypoxia [Recovered/Resolved with Sequelae]
  - Haematochezia [Recovered/Resolved]
  - Melaena [Recovered/Resolved]
  - Blood loss anaemia [Recovered/Resolved]
  - Fluid overload [Recovered/Resolved with Sequelae]
  - Weight decreased [Unknown]
  - Acute respiratory failure [Recovered/Resolved with Sequelae]
  - Dyspnoea exertional [Not Recovered/Not Resolved]
  - Transfusion [Unknown]
  - Vomiting [Recovered/Resolved]
  - Pyrexia [Unknown]
  - Therapy change [Recovered/Resolved]
  - Oedema peripheral [Recovered/Resolved]
  - Dyspnoea [Recovered/Resolved with Sequelae]
  - Abdominal pain [Recovered/Resolved]

NARRATIVE: CASE EVENT DATE: 201809
